FAERS Safety Report 7707024-7 (Version None)
Quarter: 2011Q3

REPORT INFORMATION
  Report Type: 
  Country: None (occurrence: None)
  Receive Date: 20110824
  Receipt Date: 20110817
  Transmission Date: 20111222
  Serious: No
  Sender: FDA-Public Use
  Company Number: US-PFIZER INC-2011189682

PATIENT
  Sex: Female
  Weight: 111 kg

DRUGS (4)
  1. GENOTROPIN [Suspect]
     Dosage: 0.4 MG, INJECT 0.4 MG EVERY DAY
     Route: 058
  2. PRILOSEC [Concomitant]
     Dosage: 10 MG, UNK
  3. LYRICA [Concomitant]
     Dosage: 50 MG, UNK
  4. LASIX [Concomitant]
     Dosage: 20 MG, UNK

REACTIONS (2)
  - OEDEMA PERIPHERAL [None]
  - FACE OEDEMA [None]
